FAERS Safety Report 17867930 (Version 1)
Quarter: 2020Q2

REPORT INFORMATION
  Report Type: Spontaneous
  Country: KR (occurrence: KR)
  Receive Date: 20200605
  Receipt Date: 20200605
  Transmission Date: 20200714
  Serious: Yes (Hospitalization)
  Sender: FDA-Public Use
  Company Number: KR-TAKEDA-2017TEU004841

PATIENT
  Age: 68 Year
  Sex: Female
  Weight: 65 kg

DRUGS (14)
  1. SULODEXIDE [Concomitant]
     Active Substance: SULODEXIDE
     Indication: PROPHYLAXIS
     Dosage: UNK
     Route: 048
  2. CRAVIT [Concomitant]
     Active Substance: LEVOFLOXACIN
     Indication: ASTHMA
     Dosage: UNK
     Route: 048
     Dates: start: 20160227, end: 20160304
  3. DEXILANT [Concomitant]
     Active Substance: DEXLANSOPRAZOLE
     Indication: GASTRITIS
     Dosage: UNK
     Dates: start: 20160227, end: 20160304
  4. CRAVIT [Concomitant]
     Active Substance: LEVOFLOXACIN
     Indication: ASTHMA
     Dosage: UNK
     Route: 048
     Dates: start: 20160227, end: 20170304
  5. ATOCK [Concomitant]
     Active Substance: FORMOTEROL FUMARATE
     Indication: ASTHMA
     Dosage: UNK
     Route: 048
  6. MUTERAN [Concomitant]
     Active Substance: ACETYLCYSTEINE
     Indication: ASTHMA
     Dosage: UNK
     Route: 048
  7. LAFUTIDINE [Concomitant]
     Active Substance: LAFUTIDINE
     Indication: GASTRITIS PROPHYLAXIS
     Dosage: UNK
     Route: 048
  8. SOLONDO [Concomitant]
     Active Substance: PREDNISOLONE
     Indication: ASTHMA
     Dosage: UNK
     Dates: start: 20160227, end: 20160302
  9. AVAMYS [Concomitant]
     Active Substance: FLUTICASONE FUROATE
     Indication: ASTHMA
     Dosage: UNK
     Dates: start: 20160227
  10. CISAPRIDE [Concomitant]
     Active Substance: CISAPRIDE
     Indication: GASTRITIS PROPHYLAXIS
     Dosage: UNK
     Route: 048
  11. NESINA [Suspect]
     Active Substance: ALOGLIPTIN BENZOATE
     Indication: TYPE 2 DIABETES MELLITUS
     Dosage: 12.5 MILLIGRAM, QD
     Route: 048
     Dates: start: 20150924
  12. RINOEBASTEL [Concomitant]
     Indication: ASTHMA
     Dosage: UNK
     Route: 048
  13. KANARB [Concomitant]
     Indication: PROPHYLAXIS
     Dosage: UNK
     Route: 048
  14. PSEUDOEPHEDRINE. [Concomitant]
     Active Substance: PSEUDOEPHEDRINE HYDROCHLORIDE
     Indication: ASTHMA
     Dosage: UNK
     Route: 048

REACTIONS (1)
  - Dyspnoea [Recovered/Resolved]

NARRATIVE: CASE EVENT DATE: 20160304
